FAERS Safety Report 10042294 (Version 2)
Quarter: 2014Q3

REPORT INFORMATION
  Report Type: Report from Study
  Country: JP (occurrence: JP)
  Receive Date: 20140327
  Receipt Date: 20140724
  Transmission Date: 20150326
  Serious: Yes (Hospitalization)
  Sender: FDA-Public Use
  Company Number: JP-009507513-1403JPN010335

PATIENT
  Age: 69 Year
  Sex: Male
  Weight: 58 kg

DRUGS (9)
  1. REBETOL [Suspect]
     Active Substance: RIBAVIRIN
     Dosage: 400 MG, BID
     Route: 048
     Dates: start: 20110131, end: 20110808
  2. REBETOL [Suspect]
     Active Substance: RIBAVIRIN
     Indication: CHRONIC HEPATITIS C
     Dosage: 200 MG, QD
     Route: 048
     Dates: start: 20100828, end: 20100905
  3. FERON [Suspect]
     Active Substance: INTERFERON BETA
     Dosage: 6 THOUSAND MILLION IU, QD; 3 DAYS/WEEK
     Route: 041
     Dates: start: 20100922, end: 20110808
  4. FERON [Suspect]
     Active Substance: INTERFERON BETA
     Indication: CHRONIC HEPATITIS C
     Dosage: 6 THOUSAND MILLION IU, QD; 6 DAYS/WEEK
     Route: 041
     Dates: start: 20100828, end: 20100920
  5. URSO [Concomitant]
     Active Substance: URSODIOL
     Indication: CHRONIC HEPATITIS C
     Dosage: 600 MG, QD; DIVIDED DOSE FREQUENCY UNKNOWN
     Route: 048
     Dates: end: 20110808
  6. LIVALO [Concomitant]
     Active Substance: PITAVASTATIN CALCIUM
     Indication: DYSLIPIDAEMIA
     Dosage: 1 G, QD
     Route: 048
     Dates: end: 20110808
  7. REBETOL [Suspect]
     Active Substance: RIBAVIRIN
     Dosage: 600 MG DAILY, 200 MG IN THE MORNING AND 400 MG IN THE EVENING
     Route: 048
     Dates: start: 20100914, end: 20110130
  8. NINJIN-YOEI-TO [Concomitant]
     Indication: MALAISE
     Dosage: FORMULATION: FGR;
     Route: 048
     Dates: start: 20110316, end: 20110704
  9. REBETOL [Suspect]
     Active Substance: RIBAVIRIN
     Dosage: 400 MG, QD
     Route: 048
     Dates: start: 20100906, end: 20100913

REACTIONS (5)
  - Abdominal discomfort [Recovering/Resolving]
  - Dyspnoea [Recovering/Resolving]
  - Eczema [Recovering/Resolving]
  - Hepatic cancer [Unknown]
  - Malaise [Recovering/Resolving]

NARRATIVE: CASE EVENT DATE: 20100928
